FAERS Safety Report 21507754 (Version 3)
Quarter: 2022Q4

REPORT INFORMATION
  Report Type: Spontaneous
  Country: US (occurrence: US)
  Receive Date: 20221026
  Receipt Date: 20221111
  Transmission Date: 20230112
  Serious: No
  Sender: FDA-Public Use
  Company Number: US-PFIZER INC-202201256309

PATIENT
  Age: 44 Year
  Sex: Female
  Weight: 79.365 kg

DRUGS (5)
  1. PAXLOVID [Suspect]
     Active Substance: NIRMATRELVIR\RITONAVIR
     Indication: COVID-19 treatment
     Dosage: [PF-07321332 300 MG]/[RITONAVIR 100 MG]
     Dates: start: 20221024
  2. LEVOTHYROXINE [Concomitant]
     Active Substance: LEVOTHYROXINE
     Indication: Autoimmune thyroiditis
     Dosage: UNK
     Route: 048
     Dates: start: 20190201
  3. AVONEX [Concomitant]
     Active Substance: INTERFERON BETA-1A
     Indication: Multiple sclerosis
     Dosage: UNK
     Dates: start: 2008
  4. FAMOTIDINE [Concomitant]
     Active Substance: FAMOTIDINE
     Indication: Gastrooesophageal reflux disease
     Dosage: UNK
     Route: 048
     Dates: start: 2010
  5. ASPIRIN [Concomitant]
     Active Substance: ASPIRIN
     Indication: Factor II mutation
     Dosage: UNK
     Route: 048
     Dates: start: 2021

REACTIONS (6)
  - Dysgeusia [Recovered/Resolved]
  - Dry mouth [Recovered/Resolved]
  - Dry throat [Recovered/Resolved]
  - Dysphonia [Recovered/Resolved]
  - Myalgia [Recovered/Resolved]
  - Diarrhoea [Recovered/Resolved]

NARRATIVE: CASE EVENT DATE: 20221024
